FAERS Safety Report 6723901-8 (Version None)
Quarter: 2010Q2

REPORT INFORMATION
  Report Type: 
  Country: None (occurrence: None)
  Receive Date: 20100513
  Receipt Date: 20100305
  Transmission Date: 20101027
  Serious: Yes (Hospitalization)
  Sender: FDA-Public Use
  Company Number: BE-ROCHE-673838

PATIENT
  Sex: Female
  Weight: 78 kg

DRUGS (12)
  1. PEGINTERFERON ALFA-2A [Suspect]
     Indication: HEPATITIS C
     Route: 058
     Dates: start: 20081029
  2. RIBAVIRIN [Suspect]
     Indication: HEPATITIS C
     Route: 048
     Dates: start: 20081029
  3. RIBAVIRIN [Suspect]
     Route: 048
     Dates: start: 20081114
  4. RIBAVIRIN [Suspect]
     Route: 048
     Dates: start: 20081115
  5. RIBAVIRIN [Suspect]
     Route: 048
     Dates: start: 20091118
  6. RIBAVIRIN [Suspect]
     Route: 048
     Dates: start: 20081120
  7. RIBAVIRIN [Suspect]
     Route: 048
     Dates: start: 20081121
  8. TMC435 [Suspect]
     Indication: HEPATITIS C
     Route: 048
     Dates: start: 20081029, end: 20081125
  9. LEVOTHYROXIN-NATRIUM [Concomitant]
     Route: 048
  10. METOPROLOLTARTRAT [Concomitant]
     Dosage: DRUG NAME REPORTED AS METOPROLAT TARTRAAT
     Route: 048
  11. ZOLPIDEM TARTRATE [Concomitant]
     Indication: SLEEP DISORDER
     Route: 048
  12. PARACETAMOL [Concomitant]
     Route: 048
     Dates: start: 20081030

REACTIONS (1)
  - CUPULOLITHIASIS [None]
